FAERS Safety Report 10530138 (Version 1)
Quarter: 2014Q4

REPORT INFORMATION
  Report Type: Spontaneous
  Country: JP (occurrence: None)
  Receive Date: 20141017
  Receipt Date: 20141017
  Transmission Date: 20150528
  Serious: No
  Sender: FDA-Public Use
  Company Number: A201410769

PATIENT
  Age: 67 Year
  Sex: Female

DRUGS (5)
  1. MYSLEE (ZOLPIDEM TARTRATE) [Concomitant]
  2. WYPAX (LORAZEPAM) [Concomitant]
  3. ARICEPT [Concomitant]
     Active Substance: DONEPEZIL HYDROCHLORIDE
  4. PARIET (RABEPRAZOLE SODIUM) [Concomitant]
  5. PAROXETINE HYDROCHLORIDE. [Suspect]
     Active Substance: PAROXETINE HYDROCHLORIDE
     Indication: DEPRESSION
     Route: 048
     Dates: end: 20140910

REACTIONS (2)
  - Dementia [None]
  - Inappropriate affect [None]

NARRATIVE: CASE EVENT DATE: 20140912
